FAERS Safety Report 25957235 (Version 1)
Quarter: 2025Q4

REPORT INFORMATION
  Report Type: Spontaneous
  Country: EU (occurrence: EU)
  Receive Date: 20251024
  Receipt Date: 20251024
  Transmission Date: 20260119
  Serious: Yes (Other)
  Sender: PFIZER
  Company Number: None

PATIENT
  Age: 77 Year
  Sex: Male

DRUGS (4)
  1. SULFASALAZINE [Suspect]
     Active Substance: SULFASALAZINE
     Indication: Tenosynovitis
     Dosage: 500 MG, 1X/DAY (ONE TABLET IN THE EVENING (STARTING DOSE)
     Route: 048
     Dates: start: 20250923, end: 20250925
  2. SULFASALAZINE [Suspect]
     Active Substance: SULFASALAZINE
     Indication: Rheumatoid arthritis
  3. RIVAROXABAN [Concomitant]
     Active Substance: RIVAROXABAN
     Indication: Atrial fibrillation
     Dosage: UNK, 1X/DAY (ONE TABLET DAILY)
     Route: 048
     Dates: start: 20180730
  4. NEBIVOLOL [Concomitant]
     Active Substance: NEBIVOLOL
     Dosage: 5 MG, 1X/DAY (ONE 5 MG TABLET/DAY)
     Route: 048
     Dates: start: 20110923

REACTIONS (4)
  - Laryngeal obstruction [Recovered/Resolved]
  - Malaise [Recovered/Resolved]
  - Band sensation [Recovered/Resolved]
  - Dizziness [Recovered/Resolved]

NARRATIVE: CASE EVENT DATE: 20250923
